FAERS Safety Report 10896439 (Version 1)
Quarter: 2015Q1

REPORT INFORMATION
  Report Type: Spontaneous
  Country: GB (occurrence: GB)
  Receive Date: 20150309
  Receipt Date: 20150309
  Transmission Date: 20150721
  Serious: Yes (Hospitalization)
  Sender: FDA-Public Use
  Company Number: GB-ACCORD-029073

PATIENT
  Age: 72 Year

DRUGS (2)
  1. ALLOPURINOL/ALLOPURINOL SODIUM [Suspect]
     Active Substance: ALLOPURINOL SODIUM
     Indication: GOUT
  2. MERCAPTOPURINE/MERCAPTOPURINE ANHYDROUS [Interacting]
     Active Substance: MERCAPTOPURINE
     Indication: PRODUCT USED FOR UNKNOWN INDICATION
     Dosage: ~ 1.5 MG/KG.
     Dates: start: 20140530

REACTIONS (3)
  - Labelled drug-drug interaction medication error [Unknown]
  - Pancytopenia [Unknown]
  - Neutropenic sepsis [Unknown]
